FAERS Safety Report 6853221-2 (Version None)
Quarter: 2010Q3

REPORT INFORMATION
  Report Type: 
  Country: None (occurrence: None)
  Receive Date: 20100717
  Receipt Date: 20071205
  Transmission Date: 20110219
  Serious: No
  Sender: FDA-Public Use
  Company Number: US-PFIZER INC-2007103381

PATIENT
  Sex: Male
  Weight: 73 kg

DRUGS (8)
  1. CHANTIX [Suspect]
     Indication: SMOKING CESSATION THERAPY
     Route: 048
     Dates: start: 20071101
  2. ATENOLOL [Concomitant]
     Indication: BLOOD PRESSURE ABNORMAL
     Route: 048
     Dates: start: 19870101
  3. WARFARIN SODIUM [Concomitant]
     Route: 048
     Dates: start: 19970101
  4. XANAX [Concomitant]
     Route: 048
     Dates: start: 20030101
  5. ADVAIR DISKUS 100/50 [Concomitant]
     Route: 048
     Dates: start: 20050101
  6. WARFARIN SODIUM [Concomitant]
     Route: 048
  7. TRICOR [Concomitant]
     Route: 048
  8. SIMVASTATIN [Concomitant]
     Route: 048

REACTIONS (1)
  - MUSCLE SPASMS [None]
